FAERS Safety Report 13180536 (Version 1)
Quarter: 2017Q1

REPORT INFORMATION
  Report Type: Spontaneous
  Country: CH (occurrence: CH)
  Receive Date: 20170202
  Receipt Date: 20170202
  Transmission Date: 20170428
  Serious: Yes (Hospitalization)
  Sender: FDA-Public Use
  Company Number: CH-INCYTE CORPORATION-2017IN000686

PATIENT
  Age: 72 Year
  Sex: Female

DRUGS (1)
  1. JAKAVI [Suspect]
     Active Substance: RUXOLITINIB
     Indication: MYELODYSPLASTIC SYNDROME TRANSFORMATION
     Dosage: 15 MG, BID
     Route: 065

REACTIONS (4)
  - Dyspnoea [Unknown]
  - Sinus bradycardia [Unknown]
  - Nausea [Unknown]
  - Asthenia [Unknown]
